FAERS Safety Report 7390035-1 (Version None)
Quarter: 2011Q1

REPORT INFORMATION
  Report Type: 
  Country: None (occurrence: None)
  Receive Date: 20110324
  Receipt Date: 20110315
  Transmission Date: 20110831
  Serious: Yes (Life-Threatening, Hospitalization, Other)
  Sender: FDA-Public Use
  Company Number: 023892

PATIENT
  Age: 62 Year
  Sex: Female
  Weight: 68 kg

DRUGS (18)
  1. CALCIUM [Concomitant]
  2. CRESTOR [Concomitant]
  3. SYNTHROID [Concomitant]
  4. LORTAB [Suspect]
     Indication: DEPRESSION
     Dosage: (4   (50 MG QD), (100 MG QD)
     Dates: start: 20100801, end: 20100901
  5. LORTAB [Suspect]
     Indication: DEPRESSION
     Dosage: (4   (50 MG QD), (100 MG QD)
     Dates: start: 20100901, end: 20101005
  6. DESYREL [Concomitant]
  7. SYMBICORT [Concomitant]
  8. BONIVA [Concomitant]
  9. TYLENOL W/'CODEIENE NO. 4 [Concomitant]
  10. PLAVIX [Concomitant]
  11. SYMBICORT [Concomitant]
  12. MULTI-VITAMINS [Concomitant]
  13. LAMICTAL [Concomitant]
  14. VITAMIN B 12 LICHTENSTEIN [Concomitant]
  15. LISINOPRIL [Concomitant]
  16. CELEXA [Concomitant]
  17. XANAX [Suspect]
     Indication: ANXIETY
     Dosage: (0.25 MG TID, 80 ALPRAZOLAM , ORAL)
     Route: 048
     Dates: start: 20100927, end: 20101006
  18. ASPIRINA BAYER [Concomitant]

REACTIONS (17)
  - THINKING ABNORMAL [None]
  - LOSS OF CONSCIOUSNESS [None]
  - DEHYDRATION [None]
  - MAJOR DEPRESSION [None]
  - IMPAIRED WORK ABILITY [None]
  - DYSCALCULIA [None]
  - DEPRESSION [None]
  - HEART RATE INCREASED [None]
  - PANIC ATTACK [None]
  - INTENTIONAL OVERDOSE [None]
  - BLOOD POTASSIUM DECREASED [None]
  - ABNORMAL BEHAVIOUR [None]
  - SUICIDE ATTEMPT [None]
  - ANXIETY [None]
  - SOMNOLENCE [None]
  - MEMORY IMPAIRMENT [None]
  - FEELING ABNORMAL [None]
